FAERS Safety Report 8221194-6 (Version None)
Quarter: 2012Q1

REPORT INFORMATION
  Report Type: 
  Country: None (occurrence: None)
  Receive Date: 20120320
  Receipt Date: 20120309
  Transmission Date: 20120608
  Serious: Yes (Hospitalization, Other)
  Sender: FDA-Public Use
  Company Number: PHHY2012DE021152

PATIENT
  Sex: Male
  Weight: 80 kg

DRUGS (21)
  1. RASILEZ [Suspect]
     Dosage: 1 DF, QD
     Route: 048
     Dates: start: 20110725
  2. RAMIPRIL [Concomitant]
     Dosage: 1 DF, BID
     Route: 048
  3. SIMVASTATIN [Concomitant]
     Dosage: 1 DF, QD
     Route: 048
  4. EMBOLEX [Suspect]
     Dosage: 1 DF, QD
     Route: 058
  5. AMLODIPINE [Concomitant]
     Dosage: 1 DF, QD
     Route: 048
  6. METFORMIN HCL [Concomitant]
     Dosage: 1 DF, QD
     Route: 048
  7. NEXIUM [Concomitant]
     Dosage: 20 MG 1 DF, BID
  8. ESIDRIX [Suspect]
     Dosage: 1 DF, QD
     Route: 048
  9. MORPHINE SULFATE [Concomitant]
     Dosage: 20 MG, BID
  10. MELNEURIN [Concomitant]
     Dosage: 5 ML, QD
  11. SEROQUEL [Concomitant]
     Dosage: 2 DF, BID
  12. NEXIUM [Concomitant]
     Dosage: 40MG 1 DF, BID
  13. POLYETHYLENE GLYCOL [Concomitant]
     Dosage: 1 DF, BID
  14. DIPYRONE TAB [Concomitant]
     Dosage: 4 X 20 DROPS
  15. CIRCADIN [Concomitant]
     Dosage: 1 DF, QD
  16. METOPROLOL TARTRATE AND HYDROCHLOROTHIAZIDE [Concomitant]
     Dosage: 1 DF, BID
     Route: 048
  17. PLAVIX [Concomitant]
     Dosage: 1 DF, QD
  18. METOCLOPRAMIDE [Concomitant]
     Dosage: 4 X 20 (UNSPECIFIED DOSE AND UNITS)
  19. FUROSEMIDE [Concomitant]
     Dosage: 0.5 DF, TID
  20. IBUPROFEN [Concomitant]
     Dosage: 1 DF, BID
  21. ASPIRIN [Concomitant]
     Dosage: 1 DF, QD

REACTIONS (27)
  - URINARY INCONTINENCE [None]
  - ARTHRALGIA [None]
  - DEMYELINATING POLYNEUROPATHY [None]
  - URETHRITIS [None]
  - HAEMATOCRIT DECREASED [None]
  - CIRCULATORY COLLAPSE [None]
  - MICTURITION URGENCY [None]
  - HAEMOGLOBIN DECREASED [None]
  - C-REACTIVE PROTEIN INCREASED [None]
  - PSYCHOTIC DISORDER DUE TO A GENERAL MEDICAL CONDITION [None]
  - HEMIPLEGIA [None]
  - OSTEOARTHRITIS [None]
  - BLOOD PRESSURE SYSTOLIC INCREASED [None]
  - ELECTROENCEPHALOGRAM ABNORMAL [None]
  - DEPRESSION [None]
  - RED BLOOD CELL COUNT DECREASED [None]
  - CONCOMITANT DISEASE AGGRAVATED [None]
  - CAROTID ARTERY OCCLUSION [None]
  - DYSPHAGIA [None]
  - SLEEP DISORDER [None]
  - BRAIN OEDEMA [None]
  - SPEECH DISORDER [None]
  - ANOSOGNOSIA [None]
  - INFARCTION [None]
  - MUSCULOSKELETAL PAIN [None]
  - DISORIENTATION [None]
  - PNEUMONIA ASPIRATION [None]
